FAERS Safety Report 4575098-0 (Version None)
Quarter: 2005Q1

REPORT INFORMATION
  Report Type: 
  Country: None (occurrence: None)
  Receive Date: 20050208
  Receipt Date: 20050128
  Transmission Date: 20050727
  Serious: Yes (Hospitalization)
  Sender: FDA-Public Use
  Company Number: AU-GLAXOSMITHKLINE-B0369978A

PATIENT
  Sex: Female
  Weight: 85 kg

DRUGS (6)
  1. IMIGRAN [Suspect]
     Indication: MIGRAINE
     Dosage: 6MG SINGLE DOSE
     Route: 058
     Dates: start: 19920620, end: 19920620
  2. TRYPTANOL [Concomitant]
     Indication: ILL-DEFINED DISORDER
     Dosage: 250MG AS REQUIRED
     Route: 065
  3. FORTRAL [Concomitant]
     Indication: ILL-DEFINED DISORDER
     Dosage: 200MG PER DAY
     Route: 065
  4. MELLERIL [Concomitant]
     Indication: ILL-DEFINED DISORDER
     Dosage: 100MG UNKNOWN
     Route: 065
  5. TEGRETOL [Concomitant]
     Indication: ILL-DEFINED DISORDER
     Dosage: 600MG UNKNOWN
     Route: 065
  6. BECOTIDE [Concomitant]
     Indication: ASTHMA
     Route: 055

REACTIONS (1)
  - AMNESIA [None]
